FAERS Safety Report 17210765 (Version 1)
Quarter: 2019Q4

REPORT INFORMATION
  Report Type: Spontaneous
  Country: LT (occurrence: LT)
  Receive Date: 20191227
  Receipt Date: 20191227
  Transmission Date: 20200122
  Serious: Yes (Other)
  Sender: FDA-Public Use
  Company Number: LT-BAUSCH-BL-2019-065907

PATIENT
  Age: 74 Year

DRUGS (9)
  1. DULOXETINE. [Suspect]
     Active Substance: DULOXETINE
     Dosage: 0.3 UNITS UNKNOWN
     Route: 065
  2. PREGABALIN. [Suspect]
     Active Substance: PREGABALIN
     Indication: PRODUCT USED FOR UNKNOWN INDICATION
     Route: 065
  3. TRAMADOL. [Concomitant]
     Active Substance: TRAMADOL
     Indication: PRODUCT USED FOR UNKNOWN INDICATION
     Route: 065
  4. THIOCTIC ACID [Concomitant]
     Active Substance: .ALPHA.-LIPOIC ACID
     Indication: PRODUCT USED FOR UNKNOWN INDICATION
     Route: 065
  5. DULOXETINE. [Suspect]
     Active Substance: DULOXETINE
     Indication: PRODUCT USED FOR UNKNOWN INDICATION
     Dosage: 0.6 UNITS UNKNOWN
     Route: 065
  6. DEXKETOPROFEN [Concomitant]
     Active Substance: DEXKETOPROFEN
     Indication: PRODUCT USED FOR UNKNOWN INDICATION
     Route: 065
  7. METFORMIN [Suspect]
     Active Substance: METFORMIN HYDROCHLORIDE
     Indication: TYPE 2 DIABETES MELLITUS
     Route: 065
  8. CARBAMAZEPINE. [Suspect]
     Active Substance: CARBAMAZEPINE
     Indication: PRODUCT USED FOR UNKNOWN INDICATION
     Dosage: 0.2 UNITS UNKNOWN
     Route: 065
  9. PREGABALIN. [Suspect]
     Active Substance: PREGABALIN
     Route: 065

REACTIONS (5)
  - Diabetic nephropathy [Unknown]
  - Disease progression [Unknown]
  - Nocturia [Unknown]
  - Asthenia [Unknown]
  - Drug ineffective [Unknown]
